FAERS Safety Report 7526086-3 (Version None)
Quarter: 2011Q2

REPORT INFORMATION
  Report Type: 
  Country: None (occurrence: None)
  Receive Date: 20110606
  Receipt Date: 20110602
  Transmission Date: 20111010
  Serious: Yes (Disabling)
  Sender: FDA-Public Use
  Company Number: PT-MERCK-1106PRT00001

PATIENT
  Age: 38 Year
  Sex: Female

DRUGS (1)
  1. FOSAMAX PLUS D [Suspect]
     Indication: OSTEOPOROSIS
     Route: 048
     Dates: start: 20110502, end: 20110502

REACTIONS (4)
  - MYALGIA [None]
  - LARYNGEAL OEDEMA [None]
  - ASTHENIA [None]
  - FEELING COLD [None]
